FAERS Safety Report 13986561 (Version 4)
Quarter: 2017Q4

REPORT INFORMATION
  Report Type: Report from Study
  Country: CN (occurrence: CN)
  Receive Date: 20170919
  Receipt Date: 20171030
  Transmission Date: 20180321
  Serious: Yes (Death, Hospitalization)
  Sender: FDA-Public Use
  Company Number: CN-BAYER-2017-169253

PATIENT
  Sex: Female

DRUGS (1)
  1. STIVARGA [Suspect]
     Active Substance: REGORAFENIB
     Indication: COLORECTAL CANCER METASTATIC
     Dosage: 160 MG, QD
     Route: 048
     Dates: start: 20170817, end: 20170908

REACTIONS (7)
  - Fatigue [Unknown]
  - Blood albumin decreased [None]
  - Death [Fatal]
  - Ileus [None]
  - Abdominal pain [Unknown]
  - Blood potassium decreased [None]
  - Asthenia [Unknown]

NARRATIVE: CASE EVENT DATE: 20170830
